FAERS Safety Report 18088186 (Version 1)
Quarter: 2020Q3

REPORT INFORMATION
  Report Type: Spontaneous
  Country: GB (occurrence: GB)
  Receive Date: 20200729
  Receipt Date: 20200729
  Transmission Date: 20201103
  Serious: Yes (Disabling)
  Sender: FDA-Public Use
  Company Number: GB-TEVA-2020-GB-1806313

PATIENT
  Age: 91 Year
  Sex: Female
  Weight: 75 kg

DRUGS (10)
  1. FUROSEMIDE. [Concomitant]
     Active Substance: FUROSEMIDE
     Dosage: 1 DOSAGE FORMS DAILY; MORNING
     Route: 065
     Dates: start: 20191127
  2. COLCHICINE. [Concomitant]
     Active Substance: COLCHICINE
     Dosage: 2 DOSAGE FORMS, ?WHEN STARTING ALLOPURINOL TABLETS. MAX 12 TABLETS PER COURSE. DO NOT REPEAT COURSE
     Route: 065
     Dates: start: 20200603, end: 20200607
  3. ALLOPURINOL. [Suspect]
     Active Substance: ALLOPURINOL
     Dosage: 100MG, STOP IF YOU GET A RAS...
     Route: 065
     Dates: start: 20200603
  4. RAMIPRIL. [Concomitant]
     Active Substance: RAMIPRIL
     Dosage: 1 DOSAGE FORMS DAILY; NIGHT
     Route: 065
     Dates: start: 20191127
  5. FLUCLOXACILLIN [Concomitant]
     Active Substance: FLUCLOXACILLIN
     Dosage: 4 DOSAGE FORMS
     Route: 065
     Dates: start: 20200416, end: 20200423
  6. PARACETAMOL [Concomitant]
     Active Substance: ACETAMINOPHEN
     Indication: PAIN
     Dosage: 8 DOSAGE FORMS
     Route: 065
     Dates: start: 20171102
  7. CLARITHROMYCIN. [Concomitant]
     Active Substance: CLARITHROMYCIN
     Dosage: 1 DOSAGE FORMS
     Route: 065
     Dates: start: 20200423, end: 20200430
  8. APIXABAN [Concomitant]
     Active Substance: APIXABAN
     Dosage: 2 DOSAGE FORMS, UNTIL 1/6/2020 ? YOUR DOSE...
     Route: 065
     Dates: start: 20191127
  9. ATENOLOL. [Concomitant]
     Active Substance: ATENOLOL
     Indication: BLOOD PRESSURE MANAGEMENT
     Dosage: 1 DOSAGE FORMS DAILY;  MORNING
     Route: 065
     Dates: start: 20171102
  10. FENBID [Concomitant]
     Active Substance: IBUPROFEN
     Indication: ARTHRALGIA
     Dosage: 3 DOSAGE FORMS
     Route: 065
     Dates: start: 20200529, end: 20200626

REACTIONS (1)
  - Gastrointestinal disorder [Recovering/Resolving]

NARRATIVE: CASE EVENT DATE: 20200707
